FAERS Safety Report 15261085 (Version 1)
Quarter: 2018Q3

REPORT INFORMATION
  Report Type: Spontaneous
  Country: US (occurrence: US)
  Receive Date: 20180719
  Receipt Date: 20180719
  Transmission Date: 20181010
  Serious: No
  Sender: FDA-Public Use
  Company Number: None

PATIENT
  Sex: Female
  Weight: 66.68 kg

DRUGS (3)
  1. FORTEO [Suspect]
     Active Substance: TERIPARATIDE
     Indication: SENILE OSTEOPOROSIS
     Route: 058
     Dates: start: 201804
  2. FORTEO [Suspect]
     Active Substance: TERIPARATIDE
     Indication: BLOOD PRESSURE INCREASED
     Route: 058
     Dates: start: 201804
  3. FORTEO [Suspect]
     Active Substance: TERIPARATIDE
     Indication: ARTHRALGIA
     Route: 058
     Dates: start: 201804

REACTIONS (4)
  - Dyspnoea [None]
  - Rash generalised [None]
  - Nausea [None]
  - Dizziness [None]
